FAERS Safety Report 10050527 (Version 2)
Quarter: 2014Q2

REPORT INFORMATION
  Report Type: Spontaneous
  Country: US (occurrence: US)
  Receive Date: 20140401
  Receipt Date: 20140401
  Transmission Date: 20141212
  Serious: No
  Sender: FDA-Public Use
  Company Number: US-ASTRAZENECA-2013SE80009

PATIENT
  Sex: Male
  Weight: 131.5 kg

DRUGS (3)
  1. NEXIUM [Suspect]
     Indication: GASTROOESOPHAGEAL REFLUX DISEASE
     Route: 048
     Dates: start: 2009
  2. SIMVASTATIN [Concomitant]
     Indication: BLOOD CHOLESTEROL ABNORMAL
     Route: 048
     Dates: start: 2009
  3. AMBUTEROL INHALER [Concomitant]
     Indication: LUNG DISORDER
     Dosage: 2 PUFFS PRN
     Route: 055
     Dates: start: 2011

REACTIONS (3)
  - Lung disorder [Unknown]
  - Blood cholesterol increased [Unknown]
  - Circumstance or information capable of leading to medication error [Unknown]
